FAERS Safety Report 8031428-9 (Version None)
Quarter: 2011Q4

REPORT INFORMATION
  Report Type: 
  Country: None (occurrence: None)
  Receive Date: 20111201
  Receipt Date: 20110128
  Transmission Date: 20120403
  Serious: Yes (Other)
  Sender: FDA-Public Use
  Company Number: 261980USA

PATIENT
  Age: 52 Year
  Sex: Female

DRUGS (1)
  1. PHENTERMINE HYDROCHLORIDE [Suspect]
     Indication: WEIGHT CONTROL
     Dosage: 37.5 MG, ORAL
     Route: 048
     Dates: start: 20100501

REACTIONS (4)
  - PARANOIA [None]
  - PSYCHOTIC DISORDER [None]
  - PALPITATIONS [None]
  - BLOOD PRESSURE INCREASED [None]
